FAERS Safety Report 6618506-3 (Version None)
Quarter: 2010Q1

REPORT INFORMATION
  Report Type: 
  Country: None (occurrence: None)
  Receive Date: 20100308
  Receipt Date: 20100224
  Transmission Date: 20100710
  Serious: Yes (Other)
  Sender: FDA-Public Use
  Company Number: SY-ELI_LILLY_AND_COMPANY-SY201002004652

PATIENT
  Age: 49 Year
  Sex: Female

DRUGS (3)
  1. BYETTA [Suspect]
     Indication: DIABETES MELLITUS
     Dosage: UNK, UNKNOWN
     Route: 058
     Dates: start: 20091119, end: 20100101
  2. BYETTA [Suspect]
     Dosage: 10 UG, UNKNOWN
     Route: 058
     Dates: start: 20100101, end: 20100101
  3. INSULIN [Concomitant]
     Indication: DIABETES MELLITUS
     Dosage: UNK, 2/D

REACTIONS (5)
  - FATIGUE [None]
  - HYPERSENSITIVITY [None]
  - OFF LABEL USE [None]
  - PANCREATITIS [None]
  - VOMITING [None]
